FAERS Safety Report 8141836-3 (Version None)
Quarter: 2012Q1

REPORT INFORMATION
  Report Type: 
  Country: None (occurrence: None)
  Receive Date: 20120216
  Receipt Date: 20120206
  Transmission Date: 20120608
  Serious: Yes (Hospitalization, Other)
  Sender: FDA-Public Use
  Company Number: US-ELI_LILLY_AND_COMPANY-US201202002165

PATIENT
  Age: 38 Year
  Sex: Male

DRUGS (15)
  1. TYLENOL                                 /SCH/ [Concomitant]
  2. REGLAN [Concomitant]
  3. PHENERGAN [Concomitant]
  4. ROXICODONE [Concomitant]
  5. NEURONTIN [Concomitant]
  6. FORTEO [Suspect]
     Indication: OSTEOPOROSIS
     Dosage: 20 UG, QD
     Dates: start: 20111115, end: 20111128
  7. FORTEO [Suspect]
     Dosage: 20 UG, QD
     Dates: start: 20120125
  8. ANDROGEL [Concomitant]
  9. WELLBUTRIN [Concomitant]
  10. PEPCID [Concomitant]
  11. LORATADINE [Concomitant]
  12. NORVASC [Concomitant]
  13. KLONOPIN [Concomitant]
  14. COREG [Concomitant]
  15. FLEXERIL [Concomitant]

REACTIONS (4)
  - CONVULSION [None]
  - VASCULAR PSEUDOANEURYSM [None]
  - HAEMOPTYSIS [None]
  - AORTIC RUPTURE [None]
